FAERS Safety Report 8322625-3 (Version None)
Quarter: 2012Q2

REPORT INFORMATION
  Report Type: 
  Country: None (occurrence: None)
  Receive Date: 20120426
  Receipt Date: 20120418
  Transmission Date: 20120825
  Serious: Yes (Death)
  Sender: FDA-Public Use
  Company Number: DSA_56231_2012

PATIENT

DRUGS (1)
  1. XENAZINE [Suspect]
     Dosage: (DF)

REACTIONS (1)
  - DEATH [None]
